FAERS Safety Report 21631037 (Version 4)
Quarter: 2023Q2

REPORT INFORMATION
  Report Type: Report from Study
  Country: US (occurrence: US)
  Receive Date: 20221123
  Receipt Date: 20230410
  Transmission Date: 20230722
  Serious: Yes (Hospitalization, Other)
  Sender: FDA-Public Use
  Company Number: US-ABBVIE-4208868

PATIENT
  Age: 76 Year
  Sex: Female

DRUGS (2)
  1. VENCLEXTA [Suspect]
     Active Substance: VENETOCLAX
     Indication: Acute myeloid leukaemia
     Route: 048
     Dates: start: 202206, end: 20221006
  2. VENCLEXTA [Suspect]
     Active Substance: VENETOCLAX
     Indication: Acute myeloid leukaemia
     Dosage: DOSE REDUCE
     Route: 048
     Dates: start: 20221031

REACTIONS (20)
  - Cardiac failure congestive [Unknown]
  - White blood cell count decreased [Recovered/Resolved]
  - Epistaxis [Recovered/Resolved]
  - Neutropenia [Unknown]
  - White blood cell count decreased [Unknown]
  - Feeding disorder [Unknown]
  - Weight decreased [Unknown]
  - Contusion [Unknown]
  - Feeling jittery [Unknown]
  - Illness [Unknown]
  - Peripheral swelling [Unknown]
  - Muscular weakness [Unknown]
  - Pneumonia [Unknown]
  - Renal disorder [Unknown]
  - Bone marrow disorder [Unknown]
  - Platelet count decreased [Unknown]
  - Sepsis [Unknown]
  - Epistaxis [Unknown]
  - Joint swelling [Unknown]
  - Acute myeloid leukaemia (in remission) [Unknown]

NARRATIVE: CASE EVENT DATE: 20220811
